FAERS Safety Report 23930760 (Version 2)
Quarter: 2024Q3

REPORT INFORMATION
  Report Type: Spontaneous
  Country: JP (occurrence: JP)
  Receive Date: 20240603
  Receipt Date: 20240814
  Transmission Date: 20241016
  Serious: Yes (Hospitalization, Other)
  Sender: GLAXOSMITHKLINE
  Company Number: JP-GLAXOSMITHKLINE-JP2024JPN065914

PATIENT

DRUGS (1)
  1. VALTREX [Suspect]
     Active Substance: VALACYCLOVIR HYDROCHLORIDE
     Indication: Herpes zoster
     Dosage: 3000 MG, QD

REACTIONS (6)
  - Toxic encephalopathy [Unknown]
  - Acute kidney injury [Unknown]
  - Altered state of consciousness [Unknown]
  - Hallucination [Unknown]
  - Vomiting [Unknown]
  - Dysstasia [Unknown]
